FAERS Safety Report 19291469 (Version 1)
Quarter: 2021Q2

REPORT INFORMATION
  Report Type: Spontaneous
  Country: FR (occurrence: FR)
  Receive Date: 20210523
  Receipt Date: 20210523
  Transmission Date: 20210717
  Serious: Yes (Death)
  Sender: FDA-Public Use
  Company Number: FR-TEVA-2021-FR-1912962

PATIENT
  Age: 76 Year
  Sex: Female
  Weight: 57 kg

DRUGS (17)
  1. SUFENTANIL [Suspect]
     Active Substance: SUFENTANIL
     Indication: SEDATION
     Dosage: 50 MCG
     Route: 042
     Dates: start: 20210405, end: 20210406
  2. ISOPTINE [Concomitant]
     Active Substance: VERAPAMIL HYDROCHLORIDE
  3. CALCIDOSE [Concomitant]
  4. VORICONAZOLE. [Suspect]
     Active Substance: VORICONAZOLE
     Indication: LUNG DISORDER
     Dosage: 400 MG
     Route: 042
     Dates: start: 20210403, end: 20210406
  5. VALACICLOVIR [Suspect]
     Active Substance: VALACYCLOVIR HYDROCHLORIDE
     Indication: ANTIBIOTIC PROPHYLAXIS
     Dosage: 500 MG
     Route: 048
     Dates: end: 20210406
  6. BACTRIM [Suspect]
     Active Substance: SULFAMETHOXAZOLE\TRIMETHOPRIM
     Indication: ANTIBIOTIC PROPHYLAXIS
     Dosage: 1 DF
     Route: 042
     Dates: end: 20210406
  7. CISATRACURIUM. [Suspect]
     Active Substance: CISATRACURIUM
     Indication: SEDATION
     Dosage: 50 MG
     Route: 042
     Dates: start: 20210405, end: 20210406
  8. HYPERIUM [Concomitant]
     Active Substance: RILMENIDINE PHOSPHATE
  9. MIDAZOLAM. [Suspect]
     Active Substance: MIDAZOLAM
     Indication: SEDATION
     Dosage: 50 MG
     Route: 042
     Dates: start: 20210405, end: 20210406
  10. CEFEPIME [Suspect]
     Active Substance: CEFEPIME HYDROCHLORIDE
     Indication: PNEUMONIA PNEUMOCOCCAL
     Dosage: 4 GRAM
     Route: 042
     Dates: start: 20210331, end: 20210406
  11. KARDEGIC [Concomitant]
     Active Substance: ASPIRIN DL-LYSINE
  12. CRESTOR [Concomitant]
     Active Substance: ROSUVASTATIN CALCIUM
  13. CORTANCYL [Concomitant]
     Active Substance: PREDNISONE
  14. LOVENOX [Concomitant]
     Active Substance: ENOXAPARIN SODIUM
  15. LASILIX [Suspect]
     Active Substance: FUROSEMIDE
     Indication: ACUTE PULMONARY OEDEMA
     Dosage: 500 MG
     Route: 042
     Dates: start: 20210405, end: 20210407
  16. DEXAMETHASONE. [Suspect]
     Active Substance: DEXAMETHASONE
     Indication: COVID-19
     Dosage: 6 MG
     Route: 014
     Dates: start: 20210403, end: 20210406
  17. PANTOPRAZOLE [Concomitant]
     Active Substance: PANTOPRAZOLE

REACTIONS (1)
  - Encephalopathy [Fatal]

NARRATIVE: CASE EVENT DATE: 20210406
